FAERS Safety Report 5415536-4 (Version None)
Quarter: 2007Q3

REPORT INFORMATION
  Report Type: 
  Country: None (occurrence: None)
  Receive Date: 20070815
  Receipt Date: 20070810
  Transmission Date: 20080115
  Serious: Yes (Hospitalization)
  Sender: FDA-Public Use
  Company Number: A0669500A

PATIENT
  Age: 58 Year
  Sex: Male

DRUGS (8)
  1. ADVAIR DISKUS 100/50 [Suspect]
     Indication: CHRONIC OBSTRUCTIVE PULMONARY DISEASE
     Dosage: 1PUFF TWICE PER DAY
     Route: 055
     Dates: start: 20050101
  2. SPIRIVA [Concomitant]
  3. ZOCOR [Concomitant]
  4. ASPIRIN [Concomitant]
  5. CALCIUM (UNSPECIFIED) [Concomitant]
  6. METFORMIN HCL [Concomitant]
  7. MULTI-VITAMIN [Concomitant]
  8. PRINIVIL [Concomitant]

REACTIONS (3)
  - ASTHENIA [None]
  - PNEUMONIA [None]
  - WEIGHT DECREASED [None]
